FAERS Safety Report 4921953-9 (Version None)
Quarter: 2006Q1

REPORT INFORMATION
  Report Type: 
  Country: None (occurrence: None)
  Receive Date: 20060223
  Receipt Date: 20060223
  Transmission Date: 20060701
  Serious: Yes (Hospitalization, Other)
  Sender: FDA-Public Use
  Company Number: None

PATIENT
  Age: 91 Year
  Sex: Female

DRUGS (7)
  1. TOPROL-XL [Suspect]
     Indication: HYPERTENSION
     Dosage: 25 MG PO QD
     Route: 048
  2. DIOVAN [Concomitant]
  3. FUROSEMIDE [Concomitant]
  4. L-THYROXINE [Concomitant]
  5. ASPIRIN [Concomitant]
  6. POTASSIUM CHLORIDE [Concomitant]
  7. METAMUCIL [Concomitant]

REACTIONS (3)
  - BALANCE DISORDER [None]
  - FEELING ABNORMAL [None]
  - HEART RATE DECREASED [None]
